FAERS Safety Report 9693304 (Version 3)
Quarter: 2013Q4

REPORT INFORMATION
  Report Type: Report from Study
  Country: DE (occurrence: DE)
  Receive Date: 20131118
  Receipt Date: 20131128
  Transmission Date: 20140711
  Serious: Yes (Hospitalization)
  Sender: FDA-Public Use
  Company Number: DE-ROCHE-1297201

PATIENT
  Age: 18 Year
  Sex: Male
  Weight: 48 kg

DRUGS (7)
  1. VALGANCICLOVIR [Suspect]
     Indication: RENAL TRANSPLANT
     Route: 065
  2. MYCOPHENOLATE MOFETIL [Suspect]
     Indication: PROPHYLAXIS AGAINST TRANSPLANT REJECTION
     Dosage: LAST DOSE RECEIVED ON 30/APR/2013.
     Route: 048
     Dates: start: 20061121
  3. PROGRAF [Concomitant]
     Indication: PROPHYLAXIS AGAINST TRANSPLANT REJECTION
     Dosage: LAST DOSE RECEIVED ON 30/APR/2013.
     Route: 048
     Dates: start: 20061120
  4. URBASON (GERMANY) [Concomitant]
     Indication: PROPHYLAXIS AGAINST TRANSPLANT REJECTION
     Dosage: LAST DOSE RECEIVED ON 30/APR/2013.
     Route: 048
     Dates: start: 20061121
  5. KEPINOL [Concomitant]
     Indication: PROPHYLACTIC CHEMOTHERAPY
     Dosage: LAST DOSE RECEIVED ON 30/APR/2013.
     Route: 048
     Dates: start: 20061121
  6. NEPHROTRANS [Concomitant]
     Indication: METABOLIC ACIDOSIS
     Dosage: LAST DOSE RECEIVED ON 30/APR/2013.
     Route: 048
     Dates: start: 20061204
  7. TENORMIN [Concomitant]
     Indication: HYPERTENSION
     Dosage: LAST DOSE RECEIVED ON 30/APR/2013.
     Route: 048
     Dates: start: 20061205

REACTIONS (2)
  - Contusion [Recovered/Resolved]
  - Concussion [Unknown]
